FAERS Safety Report 9272223 (Version 1)
Quarter: 2013Q2

REPORT INFORMATION
  Report Type: Spontaneous
  Country: PT (occurrence: PT)
  Receive Date: 20130506
  Receipt Date: 20130506
  Transmission Date: 20140414
  Serious: Yes (Hospitalization, Other)
  Sender: FDA-Public Use
  Company Number: PT-JNJFOC-20130308716

PATIENT
  Age: 3 Decade
  Sex: Female

DRUGS (4)
  1. REMICADE [Suspect]
     Indication: COLITIS ULCERATIVE
     Dosage: INITIATED ABOUT 3-4 YEARS AGO FROM THE TIME OF THE REPORT
     Route: 042
  2. REMICADE [Suspect]
     Indication: COLITIS ULCERATIVE
     Dosage: INITIATED ABOUT 3-4 YEARS AGO FROM THE TIME OF THE REPORT
     Route: 042
     Dates: start: 201211, end: 201211
  3. 5-ASA [Concomitant]
     Route: 065
  4. AZATHIOPRINE [Concomitant]
     Route: 065

REACTIONS (5)
  - Psoriasis [Recovering/Resolving]
  - Inflammatory bowel disease [Unknown]
  - Fistula [Unknown]
  - Crohn^s disease [Unknown]
  - Abscess [Unknown]
